FAERS Safety Report 5042647-8 (Version None)
Quarter: 2006Q2

REPORT INFORMATION
  Report Type: 
  Country: None (occurrence: None)
  Receive Date: 20060601
  Receipt Date: 20060328
  Transmission Date: 20061013
  Serious: No
  Sender: FDA-Public Use
  Company Number: 2006PV011037

PATIENT
  Age: 74 Year
  Sex: Male
  Weight: 101.1521 kg

DRUGS (7)
  1. BYETTA [Suspect]
     Indication: DIABETES MELLITUS NON-INSULIN-DEPENDENT
     Dosage: SEE IMAGE
     Route: 058
     Dates: start: 20060101, end: 20060201
  2. BYETTA [Suspect]
     Indication: DIABETES MELLITUS NON-INSULIN-DEPENDENT
     Dosage: SEE IMAGE
     Route: 058
     Dates: start: 20060201, end: 20060301
  3. BYETTA [Suspect]
     Indication: DIABETES MELLITUS NON-INSULIN-DEPENDENT
     Dosage: SEE IMAGE
     Route: 058
     Dates: start: 20060301
  4. METFORMIN [Concomitant]
  5. GLUCOTROL [Concomitant]
  6. INSULIN [Concomitant]
  7. PROTONIX [Concomitant]

REACTIONS (8)
  - ABDOMINAL PAIN UPPER [None]
  - BLOOD GLUCOSE DECREASED [None]
  - CATARACT [None]
  - DEAFNESS TRANSITORY [None]
  - DYSPEPSIA [None]
  - ERUCTATION [None]
  - HYPERCHLORHYDRIA [None]
  - NAUSEA [None]
